FAERS Safety Report 10931516 (Version 1)
Quarter: 2015Q1

REPORT INFORMATION
  Report Type: Report from Study
  Country: ES (occurrence: ES)
  Receive Date: 20150319
  Receipt Date: 20150319
  Transmission Date: 20150721
  Serious: Yes (Hospitalization)
  Sender: FDA-Public Use
  Company Number: ES-BRISTOL-MYERS SQUIBB COMPANY-BMS-2014-006399

PATIENT
  Sex: Male

DRUGS (3)
  1. SIMEPREVIR [Concomitant]
     Active Substance: SIMEPREVIR
     Indication: HEPATITIS C
     Dosage: UNK
     Route: 065
     Dates: start: 201412
  2. DACLATASVIR DIHYDROCHLORIDE [Suspect]
     Active Substance: DACLATASVIR DIHYDROCHLORIDE
     Indication: HEPATITIS C
     Dosage: 60 MG, QID
     Route: 048
     Dates: start: 20141204
  3. DASATINIB [Suspect]
     Active Substance: DASATINIB
     Indication: PRODUCT USED FOR UNKNOWN INDICATION
     Dosage: UNK
     Route: 065
     Dates: start: 20141204

REACTIONS (2)
  - Mouth ulceration [Recovered/Resolved]
  - Malaise [Not Recovered/Not Resolved]

NARRATIVE: CASE EVENT DATE: 201412
